FAERS Safety Report 5808433-3 (Version None)
Quarter: 2008Q3

REPORT INFORMATION
  Report Type: 
  Country: None (occurrence: None)
  Receive Date: 20080714
  Receipt Date: 20080709
  Transmission Date: 20090109
  Serious: Yes (Hospitalization, Other)
  Sender: FDA-Public Use
  Company Number: JP-BAYER-200811321BYL

PATIENT
  Age: 70 Year
  Sex: Male

DRUGS (9)
  1. NEXAVAR [Suspect]
     Indication: RENAL CELL CARCINOMA STAGE IV
     Dosage: TOTAL DAILY DOSE: 800 MG  UNIT DOSE: 200 MG
     Route: 048
     Dates: start: 20080425, end: 20080619
  2. NEXAVAR [Suspect]
     Dosage: TOTAL DAILY DOSE: 400 MG  UNIT DOSE: 200 MG
     Route: 048
     Dates: start: 20080620
  3. FAMOTIDINE [Concomitant]
     Indication: DRUG USE FOR UNKNOWN INDICATION
     Dosage: AS USED: 10 MG
     Route: 048
     Dates: start: 20080425
  4. PAXIL [Concomitant]
     Indication: DRUG USE FOR UNKNOWN INDICATION
     Dosage: AS USED: 10 MG
     Route: 048
     Dates: start: 20080425
  5. UFT [Concomitant]
     Indication: RENAL CELL CARCINOMA STAGE IV
     Dosage: AS USED: 200 MG
     Route: 048
     Dates: start: 20080425
  6. LOXONIN [Concomitant]
     Indication: RENAL CELL CARCINOMA STAGE IV
     Dosage: AS USED: 120 MG  UNIT DOSE: 60 MG
     Route: 048
     Dates: start: 20080425
  7. MAALOX [Concomitant]
     Indication: DRUG USE FOR UNKNOWN INDICATION
     Dosage: AS USED: 3.6 G
     Route: 048
     Dates: start: 20080425
  8. ZOMETA [Concomitant]
     Indication: RENAL CELL CARCINOMA STAGE IV
     Dosage: TOTAL DAILY DOSE: 4 MG
     Route: 042
     Dates: start: 20080425
  9. OLMETEC [Concomitant]
     Indication: DRUG USE FOR UNKNOWN INDICATION
     Dosage: AS USED: 20 MG
     Route: 048
     Dates: start: 20080425

REACTIONS (5)
  - ERYTHEMA MULTIFORME [None]
  - HEPATIC FUNCTION ABNORMAL [None]
  - HYPERTENSION [None]
  - PALMAR-PLANTAR ERYTHRODYSAESTHESIA SYNDROME [None]
  - RASH [None]
